FAERS Safety Report 14004740 (Version 1)
Quarter: 2017Q3

REPORT INFORMATION
  Report Type: Report from Study
  Country: US (occurrence: US)
  Receive Date: 20170922
  Receipt Date: 20170922
  Transmission Date: 20171128
  Serious: Yes (Hospitalization)
  Sender: FDA-Public Use
  Company Number: US-JNJFOC-20170911907

PATIENT
  Age: 70 Year
  Sex: Female

DRUGS (14)
  1. POTASSIUM CHLORIDE. [Concomitant]
     Active Substance: POTASSIUM CHLORIDE
  2. PREDNISOLONE. [Concomitant]
     Active Substance: PREDNISOLONE
  3. GABAPENTIN. [Concomitant]
     Active Substance: GABAPENTIN
  4. HUMALOG [Concomitant]
     Active Substance: INSULIN LISPRO
  5. METFORMIN [Concomitant]
     Active Substance: METFORMIN HYDROCHLORIDE
  6. ADVAIR HFA [Concomitant]
     Active Substance: FLUTICASONE PROPIONATE\SALMETEROL XINAFOATE
  7. OMEPRAZOLE. [Concomitant]
     Active Substance: OMEPRAZOLE
  8. ZOFRAN [Concomitant]
     Active Substance: ONDANSETRON HYDROCHLORIDE
  9. BACTRIM [Concomitant]
     Active Substance: SULFAMETHOXAZOLE\TRIMETHOPRIM
  10. INSULIN GLARGINE [Concomitant]
     Active Substance: INSULIN GLARGINE
  11. IMBRUVICA [Suspect]
     Active Substance: IBRUTINIB
     Indication: MANTLE CELL LYMPHOMA
     Route: 048
     Dates: start: 20170831, end: 20170906
  12. FLONASE [Concomitant]
     Active Substance: FLUTICASONE PROPIONATE
  13. LEVOTHYROXIN [Concomitant]
     Active Substance: LEVOTHYROXINE
  14. METOPROLOL TARTRATE. [Concomitant]
     Active Substance: METOPROLOL TARTRATE

REACTIONS (4)
  - Colitis [Unknown]
  - Abdominal pain [Unknown]
  - Diarrhoea [Unknown]
  - Back pain [Unknown]

NARRATIVE: CASE EVENT DATE: 201709
